FAERS Safety Report 7614516-8 (Version None)
Quarter: 2011Q3

REPORT INFORMATION
  Report Type: 
  Country: None (occurrence: None)
  Receive Date: 20110708
  Receipt Date: 20110509
  Transmission Date: 20111222
  Serious: No
  Sender: FDA-Public Use
  Company Number: 2011IP000084

PATIENT
  Age: 59 Year
  Sex: Male

DRUGS (4)
  1. BEPREVE [Suspect]
     Indication: EYE PRURITUS
     Dosage: 1 GTT;BID;OPH
     Route: 047
     Dates: start: 20110425, end: 20110430
  2. BEPREVE [Suspect]
     Indication: HYPERSENSITIVITY
     Dosage: 1 GTT;BID;OPH
     Route: 047
     Dates: start: 20110425, end: 20110430
  3. CORBIS [Concomitant]
  4. MULTI-VITAMINS [Concomitant]

REACTIONS (1)
  - HEADACHE [None]
